FAERS Safety Report 6473415-8 (Version None)
Quarter: 2009Q4

REPORT INFORMATION
  Report Type: 
  Country: None (occurrence: None)
  Receive Date: 20091204
  Receipt Date: 20081126
  Transmission Date: 20100525
  Serious: Yes (Hospitalization)
  Sender: FDA-Public Use
  Company Number: US-ELI_LILLY_AND_COMPANY-US200811005977

PATIENT
  Sex: Female

DRUGS (3)
  1. EVISTA [Suspect]
     Dosage: UNK, UNKNOWN
     Route: 065
     Dates: start: 20000101, end: 20060101
  2. EVISTA [Suspect]
     Dates: start: 20060101, end: 20080401
  3. FOSAMAX [Concomitant]
     Dosage: UNK, UNKNOWN
     Route: 065

REACTIONS (10)
  - BACK PAIN [None]
  - BODY HEIGHT DECREASED [None]
  - BONE DENSITY DECREASED [None]
  - CYSTOCELE [None]
  - HERNIA [None]
  - IMPAIRED HEALING [None]
  - NECK PAIN [None]
  - RECTOCELE [None]
  - SPINAL DISORDER [None]
  - WEIGHT DECREASED [None]
